FAERS Safety Report 20803427 (Version 1)
Quarter: 2022Q2

REPORT INFORMATION
  Report Type: Spontaneous
  Country: US (occurrence: US)
  Receive Date: 20220509
  Receipt Date: 20220509
  Transmission Date: 20220721
  Serious: Yes (Other)
  Sender: FDA-Public Use
  Company Number: US-BRISTOL-MYERS SQUIBB COMPANY-2022-023306

PATIENT
  Age: 76 Year
  Sex: Female

DRUGS (1)
  1. REVLIMID [Suspect]
     Active Substance: LENALIDOMIDE
     Indication: Plasma cell myeloma
     Dosage: FOR 14 DAYS ON THEN 7 DAYS OFF, EVERY 21 DAY CYCLE
     Route: 048
     Dates: start: 20211015

REACTIONS (8)
  - Product dose omission issue [Unknown]
  - Back pain [Unknown]
  - Dry skin [Unknown]
  - Drug ineffective [Unknown]
  - Pain [Unknown]
  - Decreased appetite [Unknown]
  - Poor quality sleep [Unknown]
  - Off label use [Unknown]
